FAERS Safety Report 5205649-4 (Version None)
Quarter: 2007Q1

REPORT INFORMATION
  Report Type: 
  Country: None (occurrence: None)
  Receive Date: 20070105
  Receipt Date: 20070105
  Transmission Date: 20070707
  Serious: Yes (Hospitalization)
  Sender: FDA-Public Use
  Company Number: None

PATIENT
  Sex: Female
  Weight: 53 kg

DRUGS (6)
  1. CYCLOBENZAPRINE HCL [Suspect]
     Indication: SUICIDE ATTEMPT
     Dosage: 100 MG PO AT ONCE
     Route: 048
     Dates: start: 20060619
  2. NAPROXEN [Suspect]
     Indication: SUICIDE ATTEMPT
     Dosage: PO AT ONCE
     Route: 048
     Dates: start: 20060619
  3. DOXEPINE [Concomitant]
  4. VENLAFAXINE HCL [Concomitant]
  5. HYDROXYZINE [Concomitant]
  6. METHADONE [Concomitant]

REACTIONS (5)
  - AGITATION [None]
  - DEPRESSED LEVEL OF CONSCIOUSNESS [None]
  - GRAND MAL CONVULSION [None]
  - HYPOTENSION [None]
  - INCORRECT DOSE ADMINISTERED [None]
